FAERS Safety Report 11567961 (Version 1)
Quarter: 2015Q3

REPORT INFORMATION
  Report Type: Spontaneous
  Country: US (occurrence: US)
  Receive Date: 20150916
  Receipt Date: 20150916
  Transmission Date: 20151125
  Serious: No
  Sender: FDA-Public Use
  Company Number: US-ELI_LILLY_AND_COMPANY-US200908001217

PATIENT
  Sex: Female

DRUGS (3)
  1. SKELAXIN [Concomitant]
     Active Substance: METAXALONE
     Indication: MUSCLE SPASMS
     Dosage: UNK, AS NEEDED
  2. FORTEO [Suspect]
     Active Substance: TERIPARATIDE
     Dosage: UNK, UNK
     Dates: start: 2009
  3. FORTEO [Suspect]
     Active Substance: TERIPARATIDE

REACTIONS (4)
  - Gait disturbance [Unknown]
  - Back pain [Unknown]
  - Arthritis [Unknown]
  - Spinal compression fracture [Unknown]
